FAERS Safety Report 17629720 (Version 1)
Quarter: 2020Q2

REPORT INFORMATION
  Report Type: Spontaneous
  Country: US (occurrence: US)
  Receive Date: 20200403
  Receipt Date: 20200403
  Transmission Date: 20200713
  Serious: No
  Sender: FDA-Public Use
  Company Number: None

PATIENT
  Age: 63 Year
  Sex: Male
  Weight: 110.79 kg

DRUGS (13)
  1. VOTRIENT [Suspect]
     Active Substance: PAZOPANIB HYDROCHLORIDE
     Indication: RENAL CANCER
     Route: 048
     Dates: start: 20200102, end: 20200403
  2. PROMETHAZINE 25 MG, ORAL [Concomitant]
  3. PENICILLIN V POTASSIUM 500MG, ORAL [Concomitant]
  4. HYDRALAZINE 100 MG, ORAL [Concomitant]
  5. VORTIENT 200MG, ORAL [Concomitant]
     Dates: start: 20190315, end: 20200102
  6. ONDASETRON 8 MG, ORAL [Concomitant]
  7. CABOMETYX 60MG, ORAL [Concomitant]
     Dates: start: 20200323, end: 20200324
  8. ATORVASTATIN 40MG, ORAL [Concomitant]
  9. AMLODIPINE 10MG , ORAL [Concomitant]
  10. LEVOTHYROXINE 125 MCG,ORAL [Concomitant]
  11. LOMOTIL 2.5 - 0.025 MG, ORAL [Concomitant]
  12. ALLOPURINOL 300MG, ORAL [Concomitant]
  13. TRAMADOL 50 MG, ORAL AS NEEDED [Concomitant]

REACTIONS (1)
  - Disease progression [None]

NARRATIVE: CASE EVENT DATE: 20200403
